FAERS Safety Report 7956304-9 (Version None)
Quarter: 2011Q4

REPORT INFORMATION
  Report Type: 
  Country: None (occurrence: None)
  Receive Date: 20111205
  Receipt Date: 20111123
  Transmission Date: 20120403
  Serious: Yes (Other)
  Sender: FDA-Public Use
  Company Number: US-JNJFOC-20080402420

PATIENT
  Sex: Male
  Weight: 57.8 kg

DRUGS (19)
  1. INFLIXIMAB [Suspect]
     Route: 042
     Dates: start: 20070723
  2. INFLIXIMAB [Suspect]
     Route: 042
     Dates: start: 20060914
  3. INFLIXIMAB [Suspect]
     Route: 042
     Dates: start: 20080102
  4. MESALAMINE [Concomitant]
     Dosage: ROUTE: ORAL AND RECTAL
  5. METHOTREXATE [Concomitant]
     Dates: start: 20070301, end: 20071116
  6. INFLIXIMAB [Suspect]
     Dosage: 12TH INFUSION SO FAR
     Route: 042
     Dates: start: 20061208
  7. INFLIXIMAB [Suspect]
     Route: 042
     Dates: start: 20071110
  8. INFLIXIMAB [Suspect]
     Route: 042
     Dates: start: 20060802
  9. ANTIBIOTICS [Concomitant]
  10. PROBIOTICS [Concomitant]
  11. CORTICOSTEROIDS [Concomitant]
  12. INFLIXIMAB [Suspect]
     Route: 042
     Dates: start: 20070330
  13. INFLIXIMAB [Suspect]
     Route: 042
     Dates: start: 20070921
  14. INFLIXIMAB [Suspect]
     Indication: CROHN'S DISEASE
     Route: 042
     Dates: start: 20061012
  15. INFLIXIMAB [Suspect]
     Route: 042
     Dates: start: 20070601
  16. INFLIXIMAB [Suspect]
     Route: 042
     Dates: start: 20070102
  17. INFLIXIMAB [Suspect]
     Route: 042
     Dates: start: 20070201
  18. INFLIXIMAB [Suspect]
     Route: 042
     Dates: start: 20070803
  19. MERCAPTOPURINE [Concomitant]
     Dates: start: 20060621, end: 20070301

REACTIONS (1)
  - MALIGNANT MELANOMA [None]
